FAERS Safety Report 17575302 (Version 1)
Quarter: 2020Q1

REPORT INFORMATION
  Report Type: Spontaneous
  Country: ES (occurrence: ES)
  Receive Date: 20200324
  Receipt Date: 20200324
  Transmission Date: 20200409
  Serious: Yes (Hospitalization, Other)
  Sender: FDA-Public Use
  Company Number: ES-GLAXOSMITHKLINE-ES2020GSK044157

PATIENT
  Age: 86 Year
  Sex: Male

DRUGS (2)
  1. VALACYCLOVIR [Suspect]
     Active Substance: VALACYCLOVIR HYDROCHLORIDE
     Indication: HERPES VIRUS INFECTION
     Dosage: 1 G, TID (PER 8 HOUR)
  2. VALACYCLOVIR [Suspect]
     Active Substance: VALACYCLOVIR HYDROCHLORIDE
     Dosage: 500 MG, QD (PER 24 HOURS)

REACTIONS (13)
  - Neurotoxicity [Recovered/Resolved]
  - Consciousness fluctuating [Recovered/Resolved]
  - Dysarthria [Recovered/Resolved]
  - Agitation [Recovered/Resolved]
  - Encephalopathy [Recovered/Resolved]
  - Hallucination, visual [Recovered/Resolved]
  - C-reactive protein increased [Unknown]
  - Pyuria [Unknown]
  - Ataxia [Recovered/Resolved]
  - Urinary tract infection [Unknown]
  - Neurological symptom [Recovered/Resolved]
  - Condition aggravated [Recovered/Resolved]
  - Cerebral atrophy [Recovered/Resolved]
